FAERS Safety Report 6371679-2 (Version None)
Quarter: 2009Q3

REPORT INFORMATION
  Report Type: 
  Country: None (occurrence: None)
  Receive Date: 20090923
  Receipt Date: 20080529
  Transmission Date: 20100115
  Serious: Yes (Other)
  Sender: FDA-Public Use
  Company Number: US-ASTRAZENECA-2008UW04660

PATIENT
  Age: 16574 Day
  Sex: Female
  Weight: 200 kg

DRUGS (19)
  1. SEROQUEL [Suspect]
     Indication: DEPRESSION
     Route: 048
     Dates: start: 20040101, end: 20051101
  2. SEROQUEL [Suspect]
     Indication: ANXIETY
     Route: 048
     Dates: start: 20040101, end: 20051101
  3. SEROQUEL [Suspect]
     Indication: BIPOLAR DISORDER
     Route: 048
     Dates: start: 20040101, end: 20051101
  4. SEROQUEL [Suspect]
     Indication: ABNORMAL SLEEP-RELATED EVENT
     Route: 048
     Dates: start: 20040101, end: 20051101
  5. SEROQUEL [Suspect]
     Indication: PARANOIA
     Route: 048
     Dates: start: 20040101, end: 20051101
  6. SEROQUEL [Suspect]
     Dosage: 200-800 MG
     Route: 048
     Dates: start: 20040930
  7. SEROQUEL [Suspect]
     Dosage: 200-800 MG
     Route: 048
     Dates: start: 20040930
  8. SEROQUEL [Suspect]
     Dosage: 200-800 MG
     Route: 048
     Dates: start: 20040930
  9. SEROQUEL [Suspect]
     Dosage: 200-800 MG
     Route: 048
     Dates: start: 20040930
  10. SEROQUEL [Suspect]
     Dosage: 200-800 MG
     Route: 048
     Dates: start: 20040930
  11. LIPITOR [Concomitant]
     Route: 065
  12. SYNTHROID [Concomitant]
     Dosage: 0.044 MG TO 0.088 MG
     Route: 065
  13. ELIMITE [Concomitant]
     Route: 065
  14. AMBIEN [Concomitant]
     Route: 065
  15. ERYTHROMYCIN [Concomitant]
     Route: 065
  16. TRIAMCINOLONE [Concomitant]
     Route: 065
  17. NEURONTIN [Concomitant]
     Route: 065
  18. BENADRYL [Concomitant]
     Route: 065
  19. CORTISPORIN [Concomitant]
     Route: 065

REACTIONS (26)
  - ACARODERMATITIS [None]
  - ARTHROPOD BITE [None]
  - BACK PAIN [None]
  - BLOOD TRIGLYCERIDES [None]
  - DEPRESSION [None]
  - DERMAL CYST [None]
  - DIABETES MELLITUS [None]
  - DIARRHOEA [None]
  - FOOD ALLERGY [None]
  - HEADACHE [None]
  - HYPERLIPIDAEMIA [None]
  - HYPOMANIA [None]
  - HYPOTHYROIDISM [None]
  - INSOMNIA [None]
  - LICE INFESTATION [None]
  - MOOD SWINGS [None]
  - OBESITY [None]
  - OTITIS MEDIA [None]
  - PARAESTHESIA [None]
  - PARANOIA [None]
  - STAPHYLOCOCCAL INFECTION [None]
  - SYNCOPE [None]
  - THYROID DISORDER [None]
  - UPPER RESPIRATORY TRACT INFECTION [None]
  - VIRAL INFECTION [None]
  - VULVOVAGINAL MYCOTIC INFECTION [None]
